FAERS Safety Report 9168202 (Version 1)
Quarter: 2013Q1

REPORT INFORMATION
  Report Type: Spontaneous
  Country: US (occurrence: US)
  Receive Date: 20130318
  Receipt Date: 20130318
  Transmission Date: 20140127
  Serious: No
  Sender: FDA-Public Use
  Company Number: US-009507513-1303USA004165

PATIENT
  Age: 37 Year
  Sex: Female

DRUGS (2)
  1. FOLLISTIM [Suspect]
     Indication: ASSISTED FERTILISATION
     Dosage: UNK
     Route: 058
  2. GANIRELIX ACETATE INJECTION [Concomitant]
     Dosage: UNK

REACTIONS (4)
  - Dizziness [Recovering/Resolving]
  - Chest pain [Recovering/Resolving]
  - Hypoaesthesia [Recovering/Resolving]
  - Hypoaesthesia [Recovering/Resolving]
